FAERS Safety Report 7921339-9 (Version None)
Quarter: 2011Q4

REPORT INFORMATION
  Report Type: 
  Country: None (occurrence: None)
  Receive Date: 20111117
  Receipt Date: 20111111
  Transmission Date: 20120403
  Serious: Yes (Other)
  Sender: FDA-Public Use
  Company Number: US-ABBOTT-11P-163-0873849-00

PATIENT
  Age: 82 Year
  Sex: Female

DRUGS (5)
  1. HUMIRA [Suspect]
     Indication: PSORIASIS
     Route: 058
     Dates: start: 20070101
  2. ASPIRIN [Concomitant]
     Indication: ATRIAL FIBRILLATION
  3. FLUOCINONIDE [Concomitant]
     Indication: PSORIASIS
     Dosage: APPLY TO BODY AS REQUIRED
  4. LEVOTHYROXINE SODIUM [Concomitant]
     Indication: HYPOTHYROIDISM
  5. TRIAMCINOLONE [Concomitant]
     Indication: PSORIASIS

REACTIONS (4)
  - CYSTITIS [None]
  - NASOPHARYNGITIS [None]
  - TOOTH FRACTURE [None]
  - SKIN CANCER [None]
